FAERS Safety Report 7269861-5 (Version None)
Quarter: 2011Q1

REPORT INFORMATION
  Report Type: 
  Country: None (occurrence: None)
  Receive Date: 20110202
  Receipt Date: 20110126
  Transmission Date: 20110831
  Serious: Yes (Death, Other)
  Sender: FDA-Public Use
  Company Number: US-JNJFOC-20110200038

PATIENT
  Sex: Female
  Weight: 74.84 kg

DRUGS (3)
  1. ORTHO-NOVUM 7/7/7-21 [Suspect]
     Indication: CONTRACEPTION
     Route: 048
  2. NORETHINDRONE/ETHINYL ESTRADIOL [Suspect]
     Indication: CONTRACEPTION
     Dosage: ABOUT 2 YEARS AGO
     Route: 065
  3. ORTHO-NOVUM 7/7/7-21 [Suspect]
     Route: 048

REACTIONS (5)
  - DEATH [None]
  - PRODUCT BLISTER PACKAGING ISSUE [None]
  - PAIN IN EXTREMITY [None]
  - TABLET PHYSICAL ISSUE [None]
  - HYPERTENSION [None]
